FAERS Safety Report 5289411-2 (Version None)
Quarter: 2007Q2

REPORT INFORMATION
  Report Type: 
  Country: None (occurrence: None)
  Receive Date: 20070406
  Receipt Date: 20070328
  Transmission Date: 20071010
  Serious: Yes (Hospitalization)
  Sender: FDA-Public Use
  Company Number: PHBS2006BE07362

PATIENT
  Age: 84 Year
  Sex: Male

DRUGS (9)
  1. ACLASTA [Suspect]
     Indication: OSTEITIS DEFORMANS
     Dates: start: 20060512
  2. DAFALGAN [Concomitant]
  3. AMLODIPINE [Concomitant]
  4. BUFLOMEDIL [Concomitant]
  5. ASAFLOW [Concomitant]
  6. LIPITOR [Concomitant]
  7. REDOMEX [Concomitant]
  8. ACTRAPID HUMAN [Concomitant]
  9. INSULATARD [Concomitant]

REACTIONS (12)
  - ABDOMINAL PAIN [None]
  - BLOOD CREATINE PHOSPHOKINASE INCREASED [None]
  - BLOOD LACTATE DEHYDROGENASE INCREASED [None]
  - BLOOD POTASSIUM DECREASED [None]
  - C-REACTIVE PROTEIN INCREASED [None]
  - DYSPNOEA [None]
  - FATIGUE [None]
  - HYPOCALCAEMIA [None]
  - HYPOPHOSPHATAEMIA [None]
  - INFLUENZA LIKE ILLNESS [None]
  - PYREXIA [None]
  - RHABDOMYOLYSIS [None]
